FAERS Safety Report 5829446-1 (Version None)
Quarter: 2008Q2

REPORT INFORMATION
  Report Type: 
  Country: None (occurrence: None)
  Receive Date: 20080601
  Receipt Date: 20080219
  Transmission Date: 20081010
  Serious: No
  Sender: FDA-Public Use
  Company Number: US200802004554

PATIENT
  Age: 74 Year
  Sex: Female
  Weight: 74.8 kg

DRUGS (2)
  1. BYETTA [Suspect]
     Indication: TYPE 2 DIABETES MELLITUS
     Dosage: 5 UG, 2/D, SUBCUTANEOUS
     Route: 058
     Dates: start: 20080215
  2. PRECOSE [Concomitant]

REACTIONS (3)
  - DRUG EFFECT DECREASED [None]
  - RHINORRHOEA [None]
  - WEIGHT DECREASED [None]
